FAERS Safety Report 4935151-6 (Version None)
Quarter: 2006Q1

REPORT INFORMATION
  Report Type: 
  Country: None (occurrence: None)
  Receive Date: 20060302
  Receipt Date: 20060217
  Transmission Date: 20060701
  Serious: Yes (Other)
  Sender: FDA-Public Use
  Company Number: 2006025594

PATIENT
  Age: 55 Year
  Sex: Male
  Weight: 108.8633 kg

DRUGS (12)
  1. VIAGRA [Suspect]
     Indication: ERECTILE DYSFUNCTION
     Dosage: 25 MG (25 MG, AS NECESSARY), ORAL
     Route: 048
     Dates: start: 20030101, end: 20030601
  2. GEMFIBROZIL [Concomitant]
  3. KLONOPIN [Concomitant]
  4. PROVIGIL [Concomitant]
  5. NORTRIPTYLINE HCL [Concomitant]
  6. NEURONTIN [Concomitant]
  7. SKELAXIN [Concomitant]
  8. OXYCONTIN [Concomitant]
  9. HYDROCODONE BITARTRATE [Concomitant]
  10. TOPROL-XL [Concomitant]
  11. TOPAMAX [Concomitant]
  12. INSULIN (INSULIN) [Concomitant]

REACTIONS (4)
  - DRUG INEFFECTIVE [None]
  - FALL [None]
  - INTERVERTEBRAL DISC OPERATION [None]
  - RENAL FAILURE CHRONIC [None]
